FAERS Safety Report 7878441-X (Version None)
Quarter: 2011Q4

REPORT INFORMATION
  Report Type: 
  Country: None (occurrence: None)
  Receive Date: 20111028
  Receipt Date: 20111025
  Transmission Date: 20120403
  Serious: Yes (Death, Hospitalization)
  Sender: FDA-Public Use
  Company Number: 2009SP004285

PATIENT
  Sex: Female
  Weight: 40 kg

DRUGS (8)
  1. FAMOTIDINE [Concomitant]
  2. PHENYTOIN SODIUM CAP [Concomitant]
  3. GLYCYRON [Concomitant]
  4. GLYCEOL [Concomitant]
  5. TEMOZOLOMIDE [Suspect]
     Indication: GLIOBLASTOMA MULTIFORME
  6. PHOHEPARUM [Concomitant]
  7. NESEA-OD [Concomitant]
  8. BAKTAR [Concomitant]

REACTIONS (6)
  - INTERSTITIAL LUNG DISEASE [None]
  - GLIOBLASTOMA MULTIFORME [None]
  - HYPOKALAEMIA [None]
  - WHITE BLOOD CELL COUNT DECREASED [None]
  - DEHYDRATION [None]
  - NEOPLASM PROGRESSION [None]
